FAERS Safety Report 12285335 (Version 4)
Quarter: 2016Q2

REPORT INFORMATION
  Report Type: Report from Study
  Country: NO (occurrence: NO)
  Receive Date: 20160420
  Receipt Date: 20160426
  Transmission Date: 20160815
  Serious: Yes (Other)
  Sender: FDA-Public Use
  Company Number: NO-ROCHE-1742861

PATIENT
  Age: 78 Year
  Sex: Male
  Weight: 86 kg

DRUGS (14)
  1. RITUXIMAB [Suspect]
     Active Substance: RITUXIMAB
     Indication: NON-HODGKIN^S LYMPHOMA
     Dosage: LAST DOSE PRIOR TO SERIOUS ADVERSE EVENT: 01/MAR/2016
     Route: 058
     Dates: start: 20130205, end: 20160406
  2. CETIRIZIN [Concomitant]
     Active Substance: CETIRIZINE HYDROCHLORIDE
     Indication: PREMEDICATION
     Route: 065
     Dates: start: 20130205
  3. POLARAMIN [Concomitant]
     Active Substance: DEXCHLORPHENIRAMINE MALEATE
     Indication: RASH
     Dosage: DOSE: 2-6 MG DAILY
     Route: 065
     Dates: start: 20130320, end: 20130429
  4. DEKSKLORFENIRAMIN [Concomitant]
     Indication: PREMEDICATION
     Route: 065
     Dates: start: 20130108, end: 20130108
  5. THERATEARS [Concomitant]
     Active Substance: CARBOXYMETHYLCELLULOSE SODIUM
     Indication: DRY EYE
     Dosage: DOSE: 1 DROP AS NEEDED
     Route: 065
     Dates: start: 20140823, end: 20140825
  6. BENZATHINE PHENOXYMETHYL PENICILLIN [Concomitant]
     Active Substance: PENICILLIN V BENZATHINE
     Indication: PNEUMOCOCCAL INFECTION
     Route: 065
     Dates: start: 20130118, end: 20130128
  7. PARACET (NORWAY) [Concomitant]
     Indication: PREMEDICATION
     Route: 065
     Dates: start: 20130108
  8. PREDNISOLON [Concomitant]
     Active Substance: PREDNISOLONE
     Indication: PREMEDICATION
     Route: 065
     Dates: start: 20130108, end: 20130402
  9. CEFOTAKSIM NATRIUM [Concomitant]
     Indication: PNEUMOCOCCAL INFECTION
     Route: 065
     Dates: start: 20130112, end: 20130118
  10. BRONKYL [Concomitant]
     Indication: PRODUCTIVE COUGH
     Dosage: AS NEEDED
     Route: 065
     Dates: start: 20130722
  11. TRIOBE [Concomitant]
     Dosage: FOR DECREASED VITAMIN B (PRE-EXISTING/UNDERLYING DISEASE)
     Route: 065
     Dates: start: 20060301
  12. CETIRIZIN [Concomitant]
     Active Substance: CETIRIZINE HYDROCHLORIDE
     Indication: RASH
     Dosage: DOSE: 10-20 MG DAILY
     Route: 065
     Dates: start: 20130320, end: 20130429
  13. RITUXIMAB [Suspect]
     Active Substance: RITUXIMAB
     Indication: NON-HODGKIN^S LYMPHOMA
     Dosage: LAST DOSE PRIOR TO SERIOUS ADVERSE EVENT: 08/JAN/2013
     Route: 042
     Dates: start: 20130108
  14. TAMSULOSIN [Concomitant]
     Active Substance: TAMSULOSIN
     Indication: URINARY RETENTION
     Route: 065
     Dates: start: 20150722, end: 20150815

REACTIONS (1)
  - Bladder cancer [Not Recovered/Not Resolved]

NARRATIVE: CASE EVENT DATE: 20160202
